FAERS Safety Report 9695325 (Version 1)
Quarter: 2013Q4

REPORT INFORMATION
  Report Type: Spontaneous
  Country: MY (occurrence: MY)
  Receive Date: 20131119
  Receipt Date: 20131119
  Transmission Date: 20140711
  Serious: Yes (Hospitalization)
  Sender: FDA-Public Use
  Company Number: MY-ABBVIE-13P-101-1158400-00

PATIENT
  Age: 28 Year
  Sex: Male

DRUGS (3)
  1. SODIUM VALPROATE [Suspect]
     Indication: BIPOLAR I DISORDER
     Route: 065
     Dates: start: 2007
  2. OLANZAPINE [Suspect]
     Indication: BIPOLAR I DISORDER
     Dosage: AT BEDTIME
     Route: 065
     Dates: start: 2007
  3. FLUOXETINE [Concomitant]
     Indication: DEPRESSION
     Dates: start: 2006

REACTIONS (11)
  - Inappropriate antidiuretic hormone secretion [Unknown]
  - Vomiting [Unknown]
  - Headache [Unknown]
  - Gait disturbance [Unknown]
  - Heart rate decreased [Unknown]
  - Hypotension [Unknown]
  - Hyponatraemia [Unknown]
  - Coma scale abnormal [Unknown]
  - Blood creatine phosphokinase increased [Unknown]
  - Neuroleptic malignant syndrome [Unknown]
  - Cyanosis [Unknown]
